FAERS Safety Report 4745813-1 (Version None)
Quarter: 2005Q3

REPORT INFORMATION
  Report Type: 
  Country: None (occurrence: None)
  Receive Date: 20050815
  Receipt Date: 20050815
  Transmission Date: 20060218
  Serious: Yes (Other)
  Sender: FDA-Public Use
  Company Number: None

PATIENT
  Age: 26 Year
  Sex: Female
  Weight: 53.5 kg

DRUGS (2)
  1. ABILIFY [Suspect]
     Indication: DEPRESSION
     Dosage: 5MG THEN 10MG DAILY ORAL
     Route: 048
     Dates: start: 20050804, end: 20050812
  2. EFFEXOR XR [Suspect]
     Indication: DEPRESSION
     Dosage: 75 MG DAILY ORAL
     Route: 048
     Dates: start: 20050804, end: 20050812

REACTIONS (1)
  - TACHYCARDIA [None]
